FAERS Safety Report 7329118-0 (Version None)
Quarter: 2011Q1

REPORT INFORMATION
  Report Type: 
  Country: None (occurrence: None)
  Receive Date: 20110303
  Receipt Date: 20110222
  Transmission Date: 20110831
  Serious: Yes (Hospitalization)
  Sender: FDA-Public Use
  Company Number: US-ASTRAZENECA-2011SE10336

PATIENT
  Age: 54 Year
  Sex: Male

DRUGS (7)
  1. LORTAB [Concomitant]
  2. PROZAC [Concomitant]
  3. FLEXERIL [Concomitant]
  4. CRESTOR [Suspect]
     Route: 048
  5. NEURONTIN [Concomitant]
  6. ASPIRIN [Concomitant]
  7. MOBIC [Concomitant]

REACTIONS (4)
  - ACCIDENT [None]
  - PAIN [None]
  - NERVE INJURY [None]
  - SPINAL OPERATION [None]
